FAERS Safety Report 21790045 (Version 2)
Quarter: 2023Q1

REPORT INFORMATION
  Report Type: Report from Study
  Country: KR (occurrence: KR)
  Receive Date: 20221228
  Receipt Date: 20230105
  Transmission Date: 20230418
  Serious: Yes (Hospitalization)
  Sender: FDA-Public Use
  Company Number: KR-DSJP-DSJ-2022-146560

PATIENT
  Age: 82 Year
  Sex: Male
  Weight: 54.8 kg

DRUGS (4)
  1. AMLODIPINE\HYDROCHLOROTHIAZIDE\OLMESARTAN [Suspect]
     Active Substance: AMLODIPINE\HYDROCHLOROTHIAZIDE\OLMESARTAN
     Indication: Hypertension
     Dosage: 1 DF, QD
     Route: 048
     Dates: start: 20220127, end: 20220320
  2. CRESTOR [Concomitant]
     Active Substance: ROSUVASTATIN CALCIUM
     Indication: Dyslipidaemia
     Dosage: 1 DF, QD
     Route: 048
     Dates: start: 202201
  3. NEBISTOL [Concomitant]
     Indication: Hypertension
     Dosage: 1.25 MG, QD
     Route: 048
     Dates: start: 20220127
  4. NEBISTOL [Concomitant]
     Dosage: 5 MG, QD
     Route: 048
     Dates: start: 202201, end: 20220126

REACTIONS (4)
  - Angina unstable [Recovered/Resolved]
  - Chronic kidney disease [Recovered/Resolved]
  - Gastric ulcer [Recovered/Resolved]
  - COVID-19 [Recovered/Resolved]

NARRATIVE: CASE EVENT DATE: 20220310
